FAERS Safety Report 17083315 (Version 2)
Quarter: 2020Q4

REPORT INFORMATION
  Report Type: Spontaneous
  Country: US (occurrence: US)
  Receive Date: 20191127
  Receipt Date: 20201012
  Transmission Date: 20210113
  Serious: No
  Sender: FDA-Public Use
  Company Number: US-SA-2019SA329062

PATIENT

DRUGS (4)
  1. LANTUS [Concomitant]
     Active Substance: INSULIN GLARGINE
     Dosage: 62 IU, QD
     Route: 065
  2. TOUJEO [Suspect]
     Active Substance: INSULIN GLARGINE
     Dosage: 32 UNITS IN THE MORNING AND 30 UNIT IN THE EVENING, BID
     Route: 065
  3. TOUJEO [Suspect]
     Active Substance: INSULIN GLARGINE
     Dosage: 40 IU, QD
     Route: 065
     Dates: start: 2020
  4. TOUJEO [Suspect]
     Active Substance: INSULIN GLARGINE
     Dosage: 66 IU, QD
     Route: 065
     Dates: start: 202009

REACTIONS (3)
  - Off label use [Unknown]
  - Intentional product use issue [Recovered/Resolved]
  - Blood glucose decreased [Recovered/Resolved]

NARRATIVE: CASE EVENT DATE: 202009
